FAERS Safety Report 19442013 (Version 1)
Quarter: 2021Q2

REPORT INFORMATION
  Report Type: Spontaneous
  Country: US (occurrence: US)
  Receive Date: 20210621
  Receipt Date: 20210621
  Transmission Date: 20210717
  Serious: Yes (Death)
  Sender: FDA-Public Use
  Company Number: US-ELI_LILLY_AND_COMPANY-US202106005288

PATIENT
  Age: 85 Year
  Sex: Female

DRUGS (1)
  1. RETEVMO [Suspect]
     Active Substance: SELPERCATINIB
     Indication: NEOPLASM MALIGNANT
     Dosage: 80 MG, UNKNOWN
     Route: 065

REACTIONS (3)
  - Cardiotoxicity [Fatal]
  - Joint swelling [Unknown]
  - Dyspnoea [Unknown]
